FAERS Safety Report 8237300-3 (Version None)
Quarter: 2012Q1

REPORT INFORMATION
  Report Type: 
  Country: None (occurrence: None)
  Receive Date: 20120327
  Receipt Date: 20120322
  Transmission Date: 20120608
  Serious: Yes (Hospitalization, Other)
  Sender: FDA-Public Use
  Company Number: JP-PFIZER INC-2012042630

PATIENT

DRUGS (4)
  1. MEROPENEM [Suspect]
  2. CLINDAMYCIN HCL [Interacting]
  3. PRODIF [Suspect]
     Indication: FUNGAL INFECTION
  4. ZOSYN [Interacting]

REACTIONS (3)
  - INTERSTITIAL LUNG DISEASE [None]
  - HEPATIC FUNCTION ABNORMAL [None]
  - DRUG INTERACTION [None]
